FAERS Safety Report 6200321-6 (Version None)
Quarter: 2009Q2

REPORT INFORMATION
  Report Type: 
  Country: None (occurrence: None)
  Receive Date: 20090522
  Receipt Date: 20090516
  Transmission Date: 20091009
  Serious: Yes (Other)
  Sender: FDA-Public Use
  Company Number: US-JNJFOC-20090504792

PATIENT
  Sex: Female
  Weight: 49.9 kg

DRUGS (5)
  1. DURAGESIC-100 [Suspect]
     Indication: PAIN
     Route: 062
  2. PRED FORTE [Concomitant]
     Indication: EYE DISORDER
     Route: 047
  3. ALPHAGAN [Concomitant]
     Indication: GLAUCOMA
     Route: 047
  4. CLONAZEPAM [Concomitant]
     Indication: CONVULSION
     Route: 048
  5. OXYCODONE [Concomitant]
     Indication: BREAKTHROUGH PAIN
     Dosage: 10/325 MG AS NEEDED
     Route: 048

REACTIONS (2)
  - EYE OPERATION [None]
  - WITHDRAWAL SYNDROME [None]
